FAERS Safety Report 5073002-2 (Version None)
Quarter: 2006Q3

REPORT INFORMATION
  Report Type: 
  Country: None (occurrence: None)
  Receive Date: 20060802
  Receipt Date: 20060720
  Transmission Date: 20061208
  Serious: Yes (Other)
  Sender: FDA-Public Use
  Company Number: 2006049947

PATIENT
  Age: 34 Year
  Sex: Female
  Weight: 50.5 kg

DRUGS (6)
  1. LYRICA [Suspect]
     Indication: EPILEPSY
     Dosage: 200 MG (100 MG, 2 IN 1 D) ORAL
     Route: 048
     Dates: start: 20060403
  2. CARBAMAZEPINE [Concomitant]
  3. ALBUTEROL SPIROS [Concomitant]
  4. CLOBAZAM [Concomitant]
  5. BECLOMETHASONE DIPROPIONATE [Concomitant]
  6. FOLIC ACID [Concomitant]

REACTIONS (5)
  - DIPLOPIA [None]
  - EYE PAIN [None]
  - HEADACHE [None]
  - INCREASED APPETITE [None]
  - VISUAL DISTURBANCE [None]
